FAERS Safety Report 4680349-8 (Version None)
Quarter: 2005Q2

REPORT INFORMATION
  Report Type: 
  Country: None (occurrence: None)
  Receive Date: 20050601
  Receipt Date: 20050520
  Transmission Date: 20051028
  Serious: Yes (Other)
  Sender: FDA-Public Use
  Company Number: 2005-03-1811

PATIENT
  Age: 63 Year
  Sex: Male

DRUGS (4)
  1. CLARITIN [Suspect]
     Indication: RHINITIS ALLERGIC
     Dosage: 10 MG ORAL
     Route: 048
     Dates: start: 20050318, end: 20050321
  2. CLARITIN [Suspect]
     Indication: SEASONAL ALLERGY
     Dosage: 10 MG ORAL
     Route: 048
     Dates: start: 20050318, end: 20050321
  3. LEVOSTIN [Concomitant]
  4. FLUMETHOLON [Concomitant]

REACTIONS (1)
  - BLOOD PRESSURE INCREASED [None]
